FAERS Safety Report 13904674 (Version 1)
Quarter: 2017Q3

REPORT INFORMATION
  Report Type: Spontaneous
  Country: US (occurrence: US)
  Receive Date: 20170825
  Receipt Date: 20170825
  Transmission Date: 20171127
  Serious: Yes (Other)
  Sender: FDA-Public Use
  Company Number: US-PFIZER INC-2017365807

PATIENT
  Age: 31 Year
  Sex: Male
  Weight: 65.77 kg

DRUGS (5)
  1. ZOLOFT [Suspect]
     Active Substance: SERTRALINE HYDROCHLORIDE
     Dosage: 25 MG (ONE TABLET), DAILY
     Route: 048
     Dates: start: 20170804
  2. ZOLOFT [Suspect]
     Active Substance: SERTRALINE HYDROCHLORIDE
     Dosage: 25 MG (ONE TABLET), DAILY
     Route: 048
  3. STRIBILD [Concomitant]
     Active Substance: COBICISTAT\ELVITEGRAVIR\EMTRICITABINE\TENOFOVIR DISOPROXIL FUMARATE
     Indication: HIV INFECTION
     Dosage: ONE TABLET (150 MG / 150 MG / 200 MG / 300 MG), DAILY
     Route: 048
     Dates: start: 201310
  4. ALBUTEROL. [Concomitant]
     Active Substance: ALBUTEROL
     Indication: ASTHMA
     Dosage: 2 PUFFS FOUR TIMES A DAY AS NEEDED
     Dates: start: 201302
  5. ZOLOFT [Suspect]
     Active Substance: SERTRALINE HYDROCHLORIDE
     Indication: MAJOR DEPRESSION
     Dosage: 25 MG (ONE TABLET), DAILY
     Route: 048
     Dates: start: 2012, end: 2014

REACTIONS (2)
  - Somnolence [Not Recovered/Not Resolved]
  - Libido decreased [Unknown]

NARRATIVE: CASE EVENT DATE: 2017
